FAERS Safety Report 5537834-6 (Version None)
Quarter: 2007Q4

REPORT INFORMATION
  Report Type: 
  Country: None (occurrence: None)
  Receive Date: 20071207
  Receipt Date: 20071126
  Transmission Date: 20080405
  Serious: Yes (Other)
  Sender: FDA-Public Use
  Company Number: FR-PFIZER INC-2007099736

PATIENT
  Age: 80 Year
  Sex: Male

DRUGS (10)
  1. LYRICA [Suspect]
     Indication: NEURALGIA
     Dosage: DAILY DOSE:225MG-FREQ:TWICE DAILY
  2. PERINDOPRIL [Concomitant]
  3. ROSUVASTATIN [Concomitant]
  4. INSULIN GLARGINE [Concomitant]
  5. FUROSEMIDE [Concomitant]
  6. GLICLAZIDE [Concomitant]
  7. CLOPIDOGREL [Concomitant]
  8. LEVOTHYROXINE SODIUM [Concomitant]
  9. PIASCLEDINE [Concomitant]
  10. DEXTROPROPOXYPHENE [Concomitant]

REACTIONS (3)
  - HYPERCHOLESTEROLAEMIA [None]
  - HYPERTRIGLYCERIDAEMIA [None]
  - PANCREATITIS ACUTE [None]
